FAERS Safety Report 13616911 (Version 1)
Quarter: 2017Q2

REPORT INFORMATION
  Report Type: Spontaneous
  Country: US (occurrence: US)
  Receive Date: 20170606
  Receipt Date: 20170606
  Transmission Date: 20170830
  Serious: Yes (Other)
  Sender: FDA-Public Use
  Company Number: US-SA-2016SA129708

PATIENT
  Age: 58 Year
  Sex: Female

DRUGS (2)
  1. SOLOSTAR [Suspect]
     Active Substance: DEVICE
     Indication: TYPE 2 DIABETES MELLITUS
  2. LANTUS SOLOSTAR [Suspect]
     Active Substance: INSULIN GLARGINE
     Indication: TYPE 2 DIABETES MELLITUS
     Dosage: DOSE:80 UNIT(S)
     Route: 065

REACTIONS (15)
  - Vomiting [Unknown]
  - Decreased appetite [Unknown]
  - Liver function test increased [Unknown]
  - Blood glucose fluctuation [Unknown]
  - Device issue [Unknown]
  - Vitamin D decreased [Unknown]
  - Hepatomegaly [Unknown]
  - Blood ketone body increased [Unknown]
  - Irritable bowel syndrome [Unknown]
  - Back disorder [Unknown]
  - Somnolence [Unknown]
  - Pollakiuria [Unknown]
  - Constipation [Unknown]
  - Hepatic pain [Unknown]
  - Urinary tract infection [Unknown]

NARRATIVE: CASE EVENT DATE: 201607
